FAERS Safety Report 6905966-3 (Version None)
Quarter: 2010Q3

REPORT INFORMATION
  Report Type: 
  Country: None (occurrence: None)
  Receive Date: 20100803
  Receipt Date: 20100803
  Transmission Date: 20110219
  Serious: Yes (Disabling)
  Sender: FDA-Public Use
  Company Number: None

PATIENT
  Age: 63 Year
  Sex: Male
  Weight: 103.5 kg

DRUGS (1)
  1. ZOLEDRONIC ACID [Suspect]
     Indication: MULTIPLE MYELOMA
     Dosage: 4 MG OTHER IV
     Route: 042
     Dates: start: 20090324, end: 20091028

REACTIONS (2)
  - OSTEONECROSIS OF JAW [None]
  - PROCEDURAL SITE REACTION [None]
